FAERS Safety Report 9148016 (Version 2)
Quarter: 2013Q1

REPORT INFORMATION
  Report Type: Spontaneous
  Country: IL (occurrence: IL)
  Receive Date: 20130308
  Receipt Date: 20130318
  Transmission Date: 20140127
  Serious: Yes (Other)
  Sender: FDA-Public Use
  Company Number: IL-AMGEN-ISRSP2013015574

PATIENT
  Age: 41 Year
  Sex: Male

DRUGS (2)
  1. ENBREL [Suspect]
     Indication: RHEUMATOID ARTHRITIS
     Dosage: 50 MG, WEEKLY
  2. MTX                                /00113802/ [Concomitant]
     Dosage: 7.5 MG, UNK

REACTIONS (3)
  - Pyrexia [Unknown]
  - Respiratory tract infection [Unknown]
  - Arthritis infective [Unknown]
